FAERS Safety Report 7086441-5 (Version None)
Quarter: 2010Q4

REPORT INFORMATION
  Report Type: 
  Country: None (occurrence: None)
  Receive Date: 20101105
  Receipt Date: 20101027
  Transmission Date: 20110411
  Serious: Yes (Other)
  Sender: FDA-Public Use
  Company Number: GXKR2010PL12179

PATIENT
  Sex: Male
  Weight: 110 kg

DRUGS (3)
  1. PHENOXYMETHYLPENICILLIN [Suspect]
     Indication: TONSILLITIS
     Dosage: 7.5 ML, TID
     Route: 048
     Dates: start: 20101016, end: 20101022
  2. XYZAL [Concomitant]
     Dosage: 4 ML/24 HOURS
     Route: 065
  3. FLUTICASONE FUROATE [Concomitant]
     Dosage: 1 DOSE/24 HOURS
     Route: 045

REACTIONS (3)
  - CONVULSION [None]
  - LOSS OF CONSCIOUSNESS [None]
  - NAUSEA [None]
